FAERS Safety Report 9535035 (Version 1)
Quarter: 2013Q3

REPORT INFORMATION
  Report Type: Report from Study
  Country: AR (occurrence: AR)
  Receive Date: 20130918
  Receipt Date: 20130918
  Transmission Date: 20140515
  Serious: Yes (Hospitalization)
  Sender: FDA-Public Use
  Company Number: AR-ABBVIE-13P-007-1148152-00

PATIENT
  Age: 77 Year
  Sex: Male

DRUGS (1)
  1. HUMIRA [Suspect]
     Indication: CROHN^S DISEASE
     Route: 058
     Dates: start: 20121228, end: 201303

REACTIONS (3)
  - Condition aggravated [Recovering/Resolving]
  - Cardiomegaly [Recovering/Resolving]
  - Chronic obstructive pulmonary disease [Recovering/Resolving]
